FAERS Safety Report 22249108 (Version 2)
Quarter: 2023Q2

REPORT INFORMATION
  Report Type: Spontaneous
  Country: US (occurrence: US)
  Receive Date: 20230425
  Receipt Date: 20230505
  Transmission Date: 20230722
  Serious: Yes (Other)
  Sender: FDA-Public Use
  Company Number: US-BAXTER-2023BAX019215

PATIENT
  Age: 71 Year
  Sex: Male

DRUGS (1)
  1. DOBUTAMINE [Suspect]
     Active Substance: DOBUTAMINE HYDROCHLORIDE
     Indication: Cardiac failure
     Dosage: INFUSION AS A BRIDGE TO LEFT VENTRICULAR ASSIST DEVICE (LVAD) PLACEMENT
     Route: 065

REACTIONS (6)
  - Eosinophilic myocarditis [Unknown]
  - Hypersensitivity [Unknown]
  - Cardiogenic shock [Unknown]
  - Condition aggravated [Unknown]
  - Ventricular tachycardia [Unknown]
  - Eosinophilia [Unknown]
